FAERS Safety Report 4816680-2 (Version None)
Quarter: 2005Q4

REPORT INFORMATION
  Report Type: 
  Country: None (occurrence: None)
  Receive Date: 20051031
  Receipt Date: 20051031
  Transmission Date: 20060501
  Serious: Yes (Disabling)
  Sender: FDA-Public Use
  Company Number: None

PATIENT
  Age: 41 Year
  Sex: Female
  Weight: 52.1637 kg

DRUGS (4)
  1. PEGASYS [Suspect]
     Indication: HEPATITIS C
     Dosage: 1 INJECTION 1 TIMER PER DAY  IM
     Route: 030
     Dates: start: 20030424, end: 20031101
  2. RIBOVARIN  LE ROCHE [Suspect]
     Dosage: 2 ORAL TABLETS
     Route: 048
     Dates: start: 20030424, end: 20031101
  3. RITALIN [Concomitant]
  4. MARINOL [Concomitant]

REACTIONS (5)
  - ECONOMIC PROBLEM [None]
  - LOSS OF EMPLOYMENT [None]
  - MENTAL DISORDER [None]
  - PARANOIA [None]
  - SUICIDAL IDEATION [None]
